FAERS Safety Report 25686357 (Version 1)
Quarter: 2025Q3

REPORT INFORMATION
  Report Type: Spontaneous
  Country: US (occurrence: None)
  Receive Date: 20250812
  Receipt Date: 20250812
  Transmission Date: 20251021
  Serious: Yes (Other)
  Sender: FDA-CTU
  Company Number: None

PATIENT
  Age: 85 Year
  Sex: Female
  Weight: 56.25 kg

DRUGS (1)
  1. BACLOFEN [Suspect]
     Active Substance: BACLOFEN
     Indication: Spondylitis
     Dosage: 1 TABLET 1 X DAY MOUTH
     Route: 048
     Dates: start: 20250628, end: 20250628

REACTIONS (5)
  - Hypersomnia [None]
  - Fall [None]
  - Contusion [None]
  - Neck pain [None]
  - Hand fracture [None]

NARRATIVE: CASE EVENT DATE: 20250628
